FAERS Safety Report 6581028 (Version 3)
Quarter: 2017Q4

REPORT INFORMATION
  Report Type: Spontaneous
  Country: AU (occurrence: AU)
  Receive Date: 20080314
  Receipt Date: 20171006
  Transmission Date: 20180321
  Serious: Yes (Hospitalization)
  Sender: FDA-Public Use
  Company Number: AU-ASTRAZENECA-2008AP01864

PATIENT
  Age: 21560 Day
  Sex: Male

DRUGS (7)
  1. MEROPENEM. [Suspect]
     Active Substance: MEROPENEM
     Route: 042
     Dates: start: 20070617, end: 20070620
  2. AMBISOME [Suspect]
     Active Substance: AMPHOTERICIN B
     Route: 042
     Dates: start: 20070617, end: 20070619
  3. ETOPOSIDE. [Suspect]
     Active Substance: ETOPOSIDE
     Indication: MYELOID LEUKAEMIA
     Route: 042
     Dates: start: 20070607, end: 20070613
  4. IDARUBICIN [Suspect]
     Active Substance: IDARUBICIN
     Indication: MYELOID LEUKAEMIA
     Route: 042
     Dates: start: 20070607, end: 20070609
  5. VANCOMYCIN HYDROCHLORIDE. [Suspect]
     Active Substance: VANCOMYCIN HYDROCHLORIDE
     Route: 042
     Dates: start: 20070617, end: 20070620
  6. CYTARABINE. [Suspect]
     Active Substance: CYTARABINE
     Indication: MYELOID LEUKAEMIA
     Route: 042
     Dates: start: 20070607, end: 20070613
  7. PALIFERMIN [Suspect]
     Active Substance: PALIFERMIN
     Route: 042
     Dates: start: 20070604, end: 20070616

REACTIONS (4)
  - Encephalopathy [Recovered/Resolved]
  - Tubulointerstitial nephritis [Recovered/Resolved]
  - Hepatitis acute [Recovered/Resolved]
  - Blood creatinine increased [Recovered/Resolved]

NARRATIVE: CASE EVENT DATE: 20070617
